FAERS Safety Report 7322062-4 (Version None)
Quarter: 2011Q1

REPORT INFORMATION
  Report Type: 
  Country: None (occurrence: None)
  Receive Date: 20110228
  Receipt Date: 20110216
  Transmission Date: 20110831
  Serious: Yes (Other)
  Sender: FDA-Public Use
  Company Number: PHBS2009AU00886

PATIENT
  Age: 61 Year
  Sex: Female

DRUGS (5)
  1. GANCICLOVIR [Concomitant]
     Dosage: UNK
  2. CYCLOSPORINE [Suspect]
     Indication: LUNG TRANSPLANT
     Dates: end: 20080717
  3. TACROLIMUS [Concomitant]
     Dosage: UNK
  4. MYCOPHENOLIC ACID [Concomitant]
     Dates: start: 20080707
  5. PREDNISONE [Concomitant]
     Dates: start: 20080707

REACTIONS (10)
  - BLOOD PRESSURE DIASTOLIC DECREASED [None]
  - WEANING FAILURE [None]
  - POSTERIOR REVERSIBLE ENCEPHALOPATHY SYNDROME [None]
  - DEPRESSED LEVEL OF CONSCIOUSNESS [None]
  - COGNITIVE DISORDER [None]
  - HALLUCINATION [None]
  - COMPLICATIONS OF TRANSPLANTED LUNG [None]
  - AGITATION [None]
  - ATRIAL FIBRILLATION [None]
  - PULMONARY AIR LEAKAGE [None]
